FAERS Safety Report 24247456 (Version 1)
Quarter: 2024Q3

REPORT INFORMATION
  Report Type: Report from Study
  Country: US (occurrence: US)
  Receive Date: 20240826
  Receipt Date: 20240826
  Transmission Date: 20241017
  Serious: Yes (Hospitalization, Other)
  Sender: JAZZ
  Company Number: US-JAZZ PHARMACEUTICALS-2024-US-011311

PATIENT
  Age: 13 Year
  Sex: Male

DRUGS (6)
  1. EPIDIOLEX [Suspect]
     Active Substance: CANNABIDIOL
     Indication: Lennox-Gastaut syndrome
     Dosage: 2 MILLILITER, BID
     Route: 048
     Dates: start: 20240518, end: 20240617
  2. ACETAMINOPHEN [Concomitant]
     Active Substance: ACETAMINOPHEN
     Indication: Product used for unknown indication
  3. FLINTSTONES MULTIPLE VITAMINS [VITAMINS NOS] [Concomitant]
     Indication: Product used for unknown indication
  4. CLOBAZAM [Concomitant]
     Active Substance: CLOBAZAM
     Indication: Product used for unknown indication
  5. LEVETIRACETAM [Concomitant]
     Active Substance: LEVETIRACETAM
  6. VALPROIC ACID [Concomitant]
     Active Substance: VALPROIC ACID

REACTIONS (3)
  - Coma [Recovered/Resolved]
  - Pneumonia [Unknown]
  - Somnolence [Unknown]

NARRATIVE: CASE EVENT DATE: 20240617
